FAERS Safety Report 10158414 (Version 1)
Quarter: 2014Q2

REPORT INFORMATION
  Report Type: Report from Study
  Country: NZ (occurrence: NZ)
  Receive Date: 20140507
  Receipt Date: 20140507
  Transmission Date: 20141212
  Serious: Yes (Other)
  Sender: FDA-Public Use
  Company Number: PHHY2014NZ054459

PATIENT
  Age: 53 Year
  Sex: Male

DRUGS (1)
  1. CLOZARIL [Suspect]
     Dosage: UNK
     Dates: start: 20140331

REACTIONS (8)
  - Hypersensitivity [Unknown]
  - Infection parasitic [Unknown]
  - Red blood cell rouleaux formation present [Unknown]
  - Red blood cell burr cells present [Unknown]
  - Adverse drug reaction [Unknown]
  - Skin disorder [Unknown]
  - Platelet count increased [Unknown]
  - Eosinophil count increased [Unknown]
